FAERS Safety Report 5914225-7 (Version None)
Quarter: 2008Q4

REPORT INFORMATION
  Report Type: 
  Country: None (occurrence: None)
  Receive Date: 20081009
  Receipt Date: 20081002
  Transmission Date: 20090506
  Serious: Yes (Hospitalization, Other)
  Sender: FDA-Public Use
  Company Number: IL-ROXANE LABORATORIES, INC.-2008-RO-00101RO

PATIENT
  Age: 55 Year
  Sex: Male

DRUGS (12)
  1. LITHIUM CARBONATE [Suspect]
     Indication: MOOD SWINGS
     Dosage: 900MG
  2. QUETIAPINE FUMARATE [Suspect]
     Indication: PSYCHOTIC DISORDER
  3. QUETIAPINE FUMARATE [Suspect]
     Indication: AFFECTIVE DISORDER
  4. QUETIAPINE FUMARATE [Suspect]
     Indication: PSYCHOMOTOR HYPERACTIVITY
  5. VALPROIC ACID [Suspect]
     Indication: MOOD ALTERED
  6. ANTIPSYCHOTICS [Suspect]
  7. FLUPHENAZINE [Suspect]
  8. FLUOXETINE [Suspect]
     Dosage: 20MG
  9. CLOTHIAPINE [Suspect]
     Dosage: 40MG
  10. DIAZEPAM [Concomitant]
     Indication: DELIRIUM
     Dosage: 10MG
  11. HALOPERIDOL [Concomitant]
     Indication: EMOTIONAL DISTRESS
     Dosage: 5MG
  12. HALOPERIDOL [Concomitant]
     Indication: AGGRESSION

REACTIONS (2)
  - DELIRIUM [None]
  - DRUG INTERACTION [None]
